FAERS Safety Report 4330546-6 (Version None)
Quarter: 2004Q2

REPORT INFORMATION
  Report Type: 
  Country: None (occurrence: None)
  Receive Date: 20040401
  Receipt Date: 20040401
  Transmission Date: 20050107
  Serious: Yes (Hospitalization)
  Sender: FDA-Public Use
  Company Number: None

PATIENT
  Age: 67 Year
  Sex: Female
  Weight: 74.4 kg

DRUGS (4)
  1. DICLOFENAC SODIUM [Suspect]
     Indication: ARTHRALGIA
     Dosage: 150MG, 75MG BID, ORAL
     Route: 048
  2. IRBESARTAN [Concomitant]
  3. SPIRONOLACTONE [Concomitant]
  4. GLYBURIDE [Concomitant]

REACTIONS (2)
  - GASTRIC HAEMORRHAGE [None]
  - GASTRITIS EROSIVE [None]
